FAERS Safety Report 8767346 (Version 2)
Quarter: 2013Q1

REPORT INFORMATION
  Report Type: Spontaneous
  Country: CA (occurrence: CA)
  Receive Date: 20120904
  Receipt Date: 20130123
  Transmission Date: 20140127
  Serious: Yes (Hospitalization)
  Sender: FDA-Public Use
  Company Number: CA-BRISTOL-MYERS SQUIBB COMPANY-16896714

PATIENT
  Age: 49 Year
  Sex: Male

DRUGS (1)
  1. DESYREL [Suspect]
     Indication: SLEEP DISORDER
     Dates: start: 20091217

REACTIONS (7)
  - Priapism [Recovering/Resolving]
  - Urinary tract infection [Unknown]
  - Scar [Unknown]
  - Incontinence [Unknown]
  - Mental disorder [Unknown]
  - Off label use [Unknown]
  - Erectile dysfunction [Unknown]
